FAERS Safety Report 4863533-X (Version None)
Quarter: 2005Q4

REPORT INFORMATION
  Report Type: 
  Country: None (occurrence: None)
  Receive Date: 20051222
  Receipt Date: 20050412
  Transmission Date: 20060501
  Serious: No
  Sender: FDA-Public Use
  Company Number: US-GLAXOSMITHKLINE-A0553810A

PATIENT
  Sex: Female

DRUGS (7)
  1. FLONASE [Suspect]
     Dosage: 1SPR PER DAY
     Route: 045
  2. HYDROCHLOROTHIAZIDE [Concomitant]
  3. LASIX [Concomitant]
  4. ALDACTONE [Concomitant]
  5. ACTOS [Concomitant]
  6. ATENOLOL [Concomitant]
  7. ALLOPURINOL [Concomitant]

REACTIONS (1)
  - EPISTAXIS [None]
